FAERS Safety Report 9741281 (Version 1)
Quarter: 2013Q4

REPORT INFORMATION
  Report Type: Spontaneous
  Country: US (occurrence: US)
  Receive Date: 20131209
  Receipt Date: 20131209
  Transmission Date: 20140711
  Serious: No
  Sender: FDA-Public Use
  Company Number: US-BIOGENIDEC-2013BI102173

PATIENT
  Age: 46 Year
  Sex: Female

DRUGS (9)
  1. TECFIDERA [Suspect]
     Indication: MULTIPLE SCLEROSIS
     Route: 048
     Dates: start: 20130925
  2. TECFIDERA [Suspect]
     Indication: MULTIPLE SCLEROSIS
     Route: 048
  3. TYSABRI [Concomitant]
  4. AVONEX [Concomitant]
  5. IBUPROFEN [Concomitant]
  6. VITAMIN B12 [Concomitant]
  7. VITAMIN D2 [Concomitant]
  8. CYCLOBENAZPRINE HCL [Concomitant]
  9. TYLENOL [Concomitant]

REACTIONS (8)
  - Headache [Unknown]
  - Back pain [Unknown]
  - Visual impairment [Unknown]
  - Balance disorder [Unknown]
  - Pruritus [Unknown]
  - Rash [Unknown]
  - Diarrhoea [Unknown]
  - Vomiting [Unknown]
